FAERS Safety Report 7516429-9 (Version None)
Quarter: 2011Q2

REPORT INFORMATION
  Report Type: 
  Country: None (occurrence: None)
  Receive Date: 20110601
  Receipt Date: 20110526
  Transmission Date: 20111010
  Serious: Yes (Other)
  Sender: FDA-Public Use
  Company Number: US-PFIZER INC-2011115117

PATIENT
  Sex: Male

DRUGS (3)
  1. LIPITOR [Suspect]
     Indication: DYSLIPIDAEMIA
     Dosage: UNK
     Dates: start: 20100701
  2. NIASPAN [Suspect]
     Indication: DYSLIPIDAEMIA
     Dosage: UNK
     Dates: start: 20100701, end: 20101101
  3. NIASPAN [Suspect]
     Dosage: UNK
     Dates: start: 20110101, end: 20110329

REACTIONS (3)
  - HEPATITIS ACUTE [None]
  - HEPATIC ENZYME INCREASED [None]
  - INFLUENZA LIKE ILLNESS [None]
